FAERS Safety Report 19621070 (Version 1)
Quarter: 2021Q3

REPORT INFORMATION
  Report Type: Spontaneous
  Country: US (occurrence: US)
  Receive Date: 20210728
  Receipt Date: 20210728
  Transmission Date: 20211014
  Serious: Yes (Hospitalization)
  Sender: FDA-Public Use
  Company Number: None

PATIENT

DRUGS (9)
  1. METFORMIN TAB 500MG ER [Concomitant]
     Dates: start: 20210514
  2. ONETOUCH TES ULTRA [Concomitant]
     Dates: start: 20210422
  3. PAROXETINE TAB 40MG [Concomitant]
     Dates: start: 20210519
  4. AMLODIPINE TAB 5MG [Concomitant]
     Dates: start: 20200814
  5. MONTELUKAST [Concomitant]
     Active Substance: MONTELUKAST SODIUM
     Dates: start: 20210510
  6. XELJANZ XR [Suspect]
     Active Substance: TOFACITINIB CITRATE
     Indication: ESSENTIAL HYPERTENSION
     Route: 048
     Dates: start: 20210608
  7. DILT?XR CAP 180MG [Concomitant]
     Dates: start: 20201015
  8. TIZANIDINE TAB 4MG [Concomitant]
     Dates: start: 20210618
  9. ATORVASTATIN TAB 40MG [Concomitant]
     Active Substance: ATORVASTATIN
     Dates: start: 20201228

REACTIONS (1)
  - Therapy interrupted [None]
